FAERS Safety Report 13245293 (Version 3)
Quarter: 2017Q3

REPORT INFORMATION
  Report Type: Report from Study
  Country: BR (occurrence: BR)
  Receive Date: 20170217
  Receipt Date: 20170712
  Transmission Date: 20171127
  Serious: Yes (Hospitalization, Other)
  Sender: FDA-Public Use
  Company Number: BR-ROCHE-1872430

PATIENT
  Sex: Female
  Weight: 100 kg

DRUGS (3)
  1. XOLAIR [Suspect]
     Active Substance: OMALIZUMAB
     Indication: ASTHMA
     Route: 058
     Dates: start: 20160809
  2. XOLAIR [Suspect]
     Active Substance: OMALIZUMAB
     Indication: LUNG DISORDER
     Route: 058
  3. XOLAIR [Suspect]
     Active Substance: OMALIZUMAB
     Route: 058
     Dates: start: 201609

REACTIONS (15)
  - Visual impairment [Recovering/Resolving]
  - Lung disorder [Unknown]
  - Speech disorder [Unknown]
  - Dyspnoea [Unknown]
  - Asthma [Unknown]
  - Respiratory disorder [Unknown]
  - Cough [Unknown]
  - Malaise [Unknown]
  - Thrombosis [Unknown]
  - Drug ineffective [Unknown]
  - Weight increased [Unknown]
  - Fatigue [Unknown]
  - Product use in unapproved indication [Unknown]
  - Allergic bronchitis [Recovering/Resolving]
  - Asthmatic crisis [Recovering/Resolving]
